FAERS Safety Report 6804003-9 (Version None)
Quarter: 2010Q2

REPORT INFORMATION
  Report Type: 
  Country: None (occurrence: None)
  Receive Date: 20100628
  Receipt Date: 20100616
  Transmission Date: 20101027
  Serious: Yes (Hospitalization)
  Sender: FDA-Public Use
  Company Number: PHHY2010CA39097

PATIENT
  Sex: Male

DRUGS (2)
  1. ZOMETA [Suspect]
     Indication: PROSTATE CANCER METASTATIC
     Dosage: 4 MG EVERY 4 WEEKS
     Route: 042
     Dates: start: 20100610
  2. ZOMETA [Suspect]
     Indication: METASTASES TO BONE

REACTIONS (3)
  - MALAISE [None]
  - PAIN [None]
  - PAIN IN JAW [None]
